FAERS Safety Report 11796273 (Version 4)
Quarter: 2015Q4

REPORT INFORMATION
  Report Type: Spontaneous
  Country: TR (occurrence: TR)
  Receive Date: 20151203
  Receipt Date: 20151231
  Transmission Date: 20160305
  Serious: Yes (Hospitalization)
  Sender: FDA-Public Use
  Company Number: PHHY2015TR156206

PATIENT
  Age: 46 Year
  Sex: Male

DRUGS (3)
  1. SANDOSTATIN LAR DEPOT [Suspect]
     Active Substance: OCTREOTIDE ACETATE
     Indication: NEOPLASM MALIGNANT
     Dosage: 30 MG, QMO, FOR 16 TIMES
     Route: 065
     Dates: start: 201210
  2. SANDOSTATIN LAR DEPOT [Suspect]
     Active Substance: OCTREOTIDE ACETATE
     Indication: LUNG NEOPLASM MALIGNANT
     Dosage: 30 MG, QMO (EVERY 28 DAYS)
     Route: 065
     Dates: start: 20151103
  3. SANDOSTATIN LAR DEPOT [Suspect]
     Active Substance: OCTREOTIDE ACETATE
     Indication: HORMONE THERAPY

REACTIONS (14)
  - Hypoaesthesia [Unknown]
  - Nerve injury [Unknown]
  - Lip swelling [Unknown]
  - Dehydration [Unknown]
  - Product use issue [Unknown]
  - Swelling face [Unknown]
  - Diarrhoea [Recovered/Resolved]
  - Vertebral column mass [Unknown]
  - Eye swelling [Unknown]
  - Localised intraabdominal fluid collection [Unknown]
  - Headache [Unknown]
  - Gastric perforation [Unknown]
  - Gait disturbance [Unknown]
  - Dyspnoea [Unknown]
